FAERS Safety Report 25235478 (Version 1)
Quarter: 2025Q2

REPORT INFORMATION
  Report Type: Spontaneous
  Country: JP (occurrence: JP)
  Receive Date: 20250424
  Receipt Date: 20250424
  Transmission Date: 20250716
  Serious: Yes (Other)
  Sender: PFIZER
  Company Number: JP-PFIZER INC-202500084874

PATIENT
  Sex: Female

DRUGS (2)
  1. LORBRENA [Suspect]
     Active Substance: LORLATINIB
  2. FULVESTRANT [Concomitant]
     Active Substance: FULVESTRANT

REACTIONS (1)
  - Neutropenia [Recovered/Resolved]
